FAERS Safety Report 9736798 (Version 1)
Quarter: 2013Q4

REPORT INFORMATION
  Report Type: Spontaneous
  Country: US (occurrence: US)
  Receive Date: 20131206
  Receipt Date: 20131206
  Transmission Date: 20140711
  Serious: No
  Sender: FDA-Public Use
  Company Number: US-BIOGENIDEC-2013BI088904

PATIENT
  Age: 48 Year
  Sex: Female
  Weight: 61 kg

DRUGS (10)
  1. TECFIDERA [Suspect]
     Indication: MULTIPLE SCLEROSIS
     Route: 048
  2. TECFIDERA [Suspect]
     Indication: MULTIPLE SCLEROSIS
     Route: 048
     Dates: start: 20130819, end: 20130919
  3. PREMARIN [Concomitant]
  4. AMITRIPTYLINE [Concomitant]
  5. BUTAL/APAP [Concomitant]
  6. MOTRIN IB [Concomitant]
  7. TRAMADOL HCL ER [Concomitant]
  8. PRENATAL [Concomitant]
  9. FISH OIL [Concomitant]
  10. ZOFRAN [Concomitant]

REACTIONS (5)
  - Muscle spasms [Unknown]
  - Abdominal pain upper [Unknown]
  - Vomiting [Recovered/Resolved]
  - Diarrhoea [Unknown]
  - Hepatic enzyme increased [Recovered/Resolved]
